FAERS Safety Report 9758513 (Version 1)
Quarter: 2013Q4

REPORT INFORMATION
  Report Type: Spontaneous
  Country: US (occurrence: None)
  Receive Date: 20131216
  Receipt Date: 20131216
  Transmission Date: 20140711
  Serious: No
  Sender: FDA-Public Use
  Company Number: CABO-13002756

PATIENT
  Age: 77 Year
  Sex: Male

DRUGS (3)
  1. COMETRIQ (CABOZANTINIB) CAPSULE [Suspect]
     Indication: PROSTATE CANCER
     Dosage: 140 MG, QD. ORAL
  2. LUPRON [Concomitant]
  3. LIPITOR [Concomitant]

REACTIONS (9)
  - Oral candidiasis [None]
  - Decreased appetite [None]
  - Fatigue [None]
  - Pharyngeal oedema [None]
  - Musculoskeletal chest pain [None]
  - Glossodynia [None]
  - Diarrhoea [None]
  - Dysphagia [None]
  - Dyspnoea exertional [None]
